FAERS Safety Report 18223011 (Version 1)
Quarter: 2020Q3

REPORT INFORMATION
  Report Type: Spontaneous
  Country: US (occurrence: US)
  Receive Date: 20200902
  Receipt Date: 20200902
  Transmission Date: 20201103
  Serious: Yes (Other)
  Sender: FDA-Public Use
  Company Number: US-EDENBRIDGE PHARMACEUTICALS, LLC-US-2020EDE000034

PATIENT
  Sex: Male
  Weight: 83.9 kg

DRUGS (1)
  1. IVERMECTIN. [Suspect]
     Active Substance: IVERMECTIN
     Indication: BRAIN NEOPLASM
     Dosage: 9 MG, QD
     Route: 048

REACTIONS (19)
  - Euphoric mood [Recovering/Resolving]
  - Ocular discomfort [Recovering/Resolving]
  - Headache [Recovering/Resolving]
  - Balance disorder [Recovering/Resolving]
  - Overdose [Recovering/Resolving]
  - Apnoea [Recovering/Resolving]
  - Vertigo [Recovering/Resolving]
  - Eye injury [Recovering/Resolving]
  - Feeling drunk [Recovering/Resolving]
  - Energy increased [Recovering/Resolving]
  - Dyspnoea [Recovering/Resolving]
  - Vomiting [Recovering/Resolving]
  - Off label use [Unknown]
  - Paralysis [Recovering/Resolving]
  - Crying [Recovering/Resolving]
  - Eye pain [Recovering/Resolving]
  - Amblyopia [Recovering/Resolving]
  - Dizziness [Recovering/Resolving]
  - Disorientation [Recovering/Resolving]
